FAERS Safety Report 17597933 (Version 1)
Quarter: 2020Q1

REPORT INFORMATION
  Report Type: Spontaneous
  Country: JM (occurrence: JM)
  Receive Date: 20200327
  Receipt Date: 20200327
  Transmission Date: 20200409
  Serious: Yes (Hospitalization, Disabling)
  Sender: FDA-Public Use
  Company Number: None

PATIENT
  Age: 36 Year
  Sex: Female
  Weight: 58.5 kg

DRUGS (3)
  1. COGENTIN [Suspect]
     Active Substance: BENZTROPINE MESYLATE
  2. EPILIM [Suspect]
     Active Substance: VALPROATE SODIUM
     Route: 048
  3. SEROQUEL [Suspect]
     Active Substance: QUETIAPINE FUMARATE

REACTIONS (10)
  - Metrorrhagia [None]
  - Smear cervix abnormal [None]
  - Heart rate decreased [None]
  - Diarrhoea [None]
  - Hyperhidrosis [None]
  - Uterine leiomyoma [None]
  - Body temperature increased [None]
  - Chills [None]
  - Abdominal pain [None]
  - Constipation [None]

NARRATIVE: CASE EVENT DATE: 20200327
